FAERS Safety Report 5423769-6 (Version None)
Quarter: 2007Q3

REPORT INFORMATION
  Report Type: 
  Country: None (occurrence: None)
  Receive Date: 20070823
  Receipt Date: 20070820
  Transmission Date: 20080115
  Serious: Yes (Other)
  Sender: FDA-Public Use
  Company Number: BE-MERCK-0707BEL00021

PATIENT
  Age: 76 Year
  Sex: Male
  Weight: 91 kg

DRUGS (3)
  1. MODURETIC 5-50 [Suspect]
     Indication: HYPERTENSION
     Route: 048
     Dates: start: 19950709
  2. TIMOLOL MALEATE [Concomitant]
     Indication: HYPERTENSION
     Route: 048
     Dates: start: 19910101, end: 20030101
  3. ENALAPRIL MALEATE [Concomitant]
     Indication: HYPERTENSION
     Route: 048
     Dates: start: 19960101, end: 20040101

REACTIONS (2)
  - DIABETES MELLITUS [None]
  - RENAL FAILURE CHRONIC [None]
